FAERS Safety Report 5301681-0 (Version None)
Quarter: 2007Q2

REPORT INFORMATION
  Report Type: 
  Country: None (occurrence: None)
  Receive Date: 20070419
  Receipt Date: 20070412
  Transmission Date: 20071010
  Serious: Yes (Other)
  Sender: FDA-Public Use
  Company Number: US-BAYER-200711172BWH

PATIENT
  Sex: Male

DRUGS (2)
  1. AVELOX [Suspect]
     Indication: BRONCHITIS
     Route: 048
  2. LOW DOSE ASPIRIN [Concomitant]

REACTIONS (4)
  - ABDOMINAL HAEMATOMA [None]
  - MALAISE [None]
  - PAIN [None]
  - SNEEZING [None]
